FAERS Safety Report 8066618-2 (Version None)
Quarter: 2012Q1

REPORT INFORMATION
  Report Type: 
  Country: None (occurrence: None)
  Receive Date: 20120124
  Receipt Date: 20120119
  Transmission Date: 20120608
  Serious: Yes (Other)
  Sender: FDA-Public Use
  Company Number: PHEH2011US009097

PATIENT
  Sex: Male
  Weight: 67.574 kg

DRUGS (21)
  1. EXJADE [Suspect]
     Dosage: 1000 MG, DAILY
     Route: 048
     Dates: start: 20110701
  2. NEORAL [Concomitant]
     Dosage: 25 MG, UNK
     Route: 065
  3. ACYCLOVIR [Concomitant]
     Dosage: 200 MG, UNK
     Route: 065
  4. ASCORBIC ACID [Concomitant]
     Dosage: 500 MG, UNK
     Route: 065
  5. BACTRIM [Concomitant]
     Dosage: UNK
     Route: 065
  6. AMLODIPINE [Concomitant]
     Dosage: 10 MG, DAILY
  7. CARVEDILOL [Concomitant]
     Dosage: 12.5 MG, UNK
     Route: 065
  8. MAGNESIUM OXIDE [Concomitant]
     Route: 065
  9. NITROSTAT [Concomitant]
     Dosage: 0.4 MG, UNK
     Route: 060
  10. MULTI-VITAMIN [Concomitant]
     Route: 065
  11. RED BLOOD CELLS, CONCENTRATED [Concomitant]
  12. METOCLOPRAMIDE [Concomitant]
     Dosage: 5 MG, UNK
     Route: 065
  13. SIMVASTATIN [Concomitant]
     Dosage: 10 MG, UNK
  14. FLOMAX [Concomitant]
     Dosage: 0.4 MG, UNK
     Route: 065
  15. CYCLOSPORINE [Concomitant]
     Route: 065
  16. TAMSULOSIN HCL [Concomitant]
     Dosage: 0.8 MG, PRN
  17. OXYCODONE HCL [Concomitant]
     Dosage: 5 MG, UNK
  18. ZOLPIDEM [Concomitant]
     Dosage: 05 MG, PRN
  19. EXJADE [Suspect]
     Indication: IRON OVERLOAD
     Dosage: 1000 MG, DAILY
     Route: 048
     Dates: start: 20110701
  20. NORVASC [Concomitant]
     Dosage: 2.5 MG, UNK
     Route: 065
  21. TIZANIDINE HCL [Concomitant]
     Dosage: 4 MG, UNK
     Route: 065

REACTIONS (2)
  - PNEUMONIA [None]
  - BREATH SOUNDS ABNORMAL [None]
